FAERS Safety Report 20750118 (Version 2)
Quarter: 2022Q2

REPORT INFORMATION
  Report Type: Spontaneous
  Country: JP (occurrence: JP)
  Receive Date: 20220426
  Receipt Date: 20220628
  Transmission Date: 20220720
  Serious: Yes (Death, Hospitalization)
  Sender: FDA-Public Use
  Company Number: JP-DSJP-DSJ-2021-125945

PATIENT
  Age: 5 Decade
  Sex: Male
  Weight: 77 kg

DRUGS (5)
  1. ENHERTU [Suspect]
     Active Substance: FAM-TRASTUZUMAB DERUXTECAN-NXKI
     Indication: HER2 positive gastric cancer
     Dosage: 6.4 MG/KG, ONCE EVERY 3 WK
     Route: 041
     Dates: start: 20210611, end: 20210611
  2. ENHERTU [Suspect]
     Active Substance: FAM-TRASTUZUMAB DERUXTECAN-NXKI
     Dosage: 6.4 MG/KG, ONCE EVERY 3 WK
     Route: 041
     Dates: start: 20210720, end: 20210720
  3. DECADRON [Concomitant]
     Active Substance: DEXAMETHASONE
     Dosage: 4MG/DAY
     Route: 048
     Dates: start: 20210627, end: 20210722
  4. DECADRON [Concomitant]
     Active Substance: DEXAMETHASONE
     Dosage: 2MG/DAY
     Route: 048
     Dates: start: 20210723, end: 20210807
  5. DEXAMETHASONE SODIUM PHOSPHATE [Concomitant]
     Active Substance: DEXAMETHASONE SODIUM PHOSPHATE
     Dosage: 6.6MG/DAY
     Route: 042
     Dates: start: 20210613, end: 20210626

REACTIONS (2)
  - Pneumocystis jirovecii pneumonia [Recovering/Resolving]
  - Disease progression [Fatal]

NARRATIVE: CASE EVENT DATE: 20210808
